FAERS Safety Report 20980348 (Version 1)
Quarter: 2022Q2

REPORT INFORMATION
  Report Type: Spontaneous
  Country: US (occurrence: US)
  Receive Date: 20220620
  Receipt Date: 20220620
  Transmission Date: 20220720
  Serious: No
  Sender: FDA-Public Use
  Company Number: US-AUROBINDO-AUR-APL-2021-053778

PATIENT
  Sex: Female

DRUGS (1)
  1. CIPROFLOXACIN [Suspect]
     Active Substance: CIPROFLOXACIN
     Indication: Product used for unknown indication
     Dosage: 2 DOSAGE FORM (ONE IN THE MORNING AND ONE IN THE NIGHT) TWO TIMES A DAY
     Route: 065

REACTIONS (3)
  - Arthralgia [Not Recovered/Not Resolved]
  - Tendon pain [Not Recovered/Not Resolved]
  - Gait disturbance [Not Recovered/Not Resolved]
